FAERS Safety Report 16806803 (Version 1)
Quarter: 2019Q3

REPORT INFORMATION
  Report Type: Spontaneous
  Country: CA (occurrence: CA)
  Receive Date: 20190913
  Receipt Date: 20190913
  Transmission Date: 20191005
  Serious: Yes (Other)
  Sender: FDA-Public Use
  Company Number: CA-ASCEND THERAPEUTICS US, LLC-2074452

PATIENT
  Sex: Female

DRUGS (20)
  1. AMLODIPINE [Suspect]
     Active Substance: AMLODIPINE BESYLATE
  2. ESTROGEL [Suspect]
     Active Substance: ESTRADIOL
     Indication: PRODUCT USED FOR UNKNOWN INDICATION
     Route: 067
  3. MINT ZOPICLONE?FOR INSOMNIA [Suspect]
     Active Substance: ZOPICLONE
  4. BREXPIPRAZOLE (BREXPIPRAZOLE) [Suspect]
     Active Substance: BREXPIPRAZOLE
  5. LEVOTHYROXINE SODIUM. [Suspect]
     Active Substance: LEVOTHYROXINE SODIUM
  6. AL MAGEL (ALMAGATE) [Suspect]
     Active Substance: ALMAGATE
     Route: 048
  7. FLUVIRAL [Suspect]
     Active Substance: INFLUENZA VIRUS VACCINE
  8. RANITIDINE. [Suspect]
     Active Substance: RANITIDINE
  9. CLOZAPINE. [Suspect]
     Active Substance: CLOZAPINE
  10. CLOZAPINE. [Suspect]
     Active Substance: CLOZAPINE
  11. JAMP ACETAMINOPHEN (PARACETAMOL)?FOR PYREXIA [Suspect]
     Active Substance: ACETAMINOPHEN
  12. OLANZAPINE. [Suspect]
     Active Substance: OLANZAPINE
  13. ARIPIPRAZOLE. [Suspect]
     Active Substance: ARIPIPRAZOLE
  14. DEPAKOTE [Suspect]
     Active Substance: DIVALPROEX SODIUM
  15. CLOTRIMAZOLE. [Suspect]
     Active Substance: CLOTRIMAZOLE
  16. OLANZAPINE. [Suspect]
     Active Substance: OLANZAPINE
  17. PREMARIN [Suspect]
     Active Substance: ESTROGENS, CONJUGATED
     Route: 061
  18. JAMP ACETAMINOPHEN (PARACETAMOL)?FOR PAIN [Suspect]
     Active Substance: ACETAMINOPHEN
  19. OLANZAPINE. [Suspect]
     Active Substance: OLANZAPINE
  20. CHOLECALCIFEROL [Suspect]
     Active Substance: CHOLECALCIFEROL

REACTIONS (5)
  - Drug interaction [Unknown]
  - Electrocardiogram QT prolonged [Unknown]
  - Sinus rhythm [Unknown]
  - Schizoaffective disorder [Unknown]
  - Drug level increased [Unknown]
